FAERS Safety Report 14079369 (Version 1)
Quarter: 2017Q4

REPORT INFORMATION
  Report Type: Spontaneous
  Country: US (occurrence: US)
  Receive Date: 20171012
  Receipt Date: 20171012
  Transmission Date: 20180321
  Serious: Yes (Other)
  Sender: FDA-Public Use
  Company Number: US-OTONOMY INC.-2017OTO00033

PATIENT

DRUGS (1)
  1. OTIPRIO [Suspect]
     Active Substance: CIPROFLOXACIN

REACTIONS (1)
  - Deafness [Unknown]
